FAERS Safety Report 5524988-0 (Version None)
Quarter: 2007Q4

REPORT INFORMATION
  Report Type: 
  Country: None (occurrence: None)
  Receive Date: 20071119
  Receipt Date: 20071113
  Transmission Date: 20080405
  Serious: Yes (Hospitalization)
  Sender: FDA-Public Use
  Company Number: 2007BI020242

PATIENT
  Age: 36 Year
  Sex: Male

DRUGS (1)
  1. AVONEX [Suspect]
     Indication: MULTIPLE SCLEROSIS
     Dosage: 30 UG; QW; IM
     Route: 030
     Dates: start: 20020906, end: 20040101

REACTIONS (4)
  - ABASIA [None]
  - ASTHENIA [None]
  - INFLUENZA LIKE ILLNESS [None]
  - PARALYSIS [None]
